FAERS Safety Report 19076168 (Version 2)
Quarter: 2022Q1

REPORT INFORMATION
  Report Type: Spontaneous
  Country: GB (occurrence: GB)
  Receive Date: 20210331
  Receipt Date: 20220222
  Transmission Date: 20220423
  Serious: Yes (Other)
  Sender: FDA-Public Use
  Company Number: GB-MHRA-EYC 00244704

PATIENT
  Age: 65 Year
  Sex: Female
  Weight: 59.87 kg

DRUGS (3)
  1. LOPERAMIDE [Suspect]
     Active Substance: LOPERAMIDE
     Indication: Colitis ulcerative
     Dosage: 2 MILLIGRAM, AS NECESSARY
     Route: 048
     Dates: start: 20210104, end: 20210301
  2. LOPERAMIDE [Suspect]
     Active Substance: LOPERAMIDE
     Indication: Diarrhoea
  3. MESALAMINE [Concomitant]
     Active Substance: MESALAMINE
     Indication: Ill-defined disorder
     Dosage: 400 MILLIGRAM, MODIFIED RELEASE
     Route: 048

REACTIONS (4)
  - Diarrhoea [Recovered/Resolved]
  - Product substitution issue [Unknown]
  - Off label use [Unknown]
  - Contraindicated product administered [Unknown]

NARRATIVE: CASE EVENT DATE: 20210129
